FAERS Safety Report 4302996-5 (Version None)
Quarter: 2004Q1

REPORT INFORMATION
  Report Type: 
  Country: None (occurrence: None)
  Receive Date: 20040224
  Receipt Date: 20040127
  Transmission Date: 20041129
  Serious: Yes (Death)
  Sender: FDA-Public Use
  Company Number: ES-GLAXOSMITHKLINE-B0321208A

PATIENT
  Age: 53 Year
  Sex: Female

DRUGS (1)
  1. HYCAMTIN [Suspect]
     Indication: OVARIAN CANCER
     Dosage: 2.6MGM2 PER DAY
     Route: 042
     Dates: start: 20031215, end: 20031219

REACTIONS (5)
  - DIARRHOEA [None]
  - FEBRILE NEUTROPENIA [None]
  - HEPATOTOXICITY [None]
  - MUCOSAL INFLAMMATION [None]
  - MULTI-ORGAN FAILURE [None]
